FAERS Safety Report 5445057-4 (Version None)
Quarter: 2007Q3

REPORT INFORMATION
  Report Type: 
  Country: None (occurrence: None)
  Receive Date: 20070906
  Receipt Date: 20070831
  Transmission Date: 20080115
  Serious: Yes (Death, Other)
  Sender: FDA-Public Use
  Company Number: GB-ASTRAZENECA-2007GB01197

PATIENT
  Age: 26696 Day
  Sex: Male

DRUGS (3)
  1. SEROQUEL [Suspect]
     Dosage: 37.5 MG AT 09:00. 50 MG AT NIGHT
     Route: 048
     Dates: start: 20070402
  2. LORAZEPAM [Concomitant]
     Indication: ILL-DEFINED DISORDER
     Route: 048
  3. TEMAZEPAM [Concomitant]
     Indication: SLEEP DISORDER
     Dosage: LONG TERM
     Route: 048

REACTIONS (2)
  - DEATH [None]
  - NEUROLEPTIC MALIGNANT SYNDROME [None]
